FAERS Safety Report 9517943 (Version 2)
Quarter: 2014Q1

REPORT INFORMATION
  Report Type: Spontaneous
  Country: US (occurrence: None)
  Receive Date: 20130305
  Receipt Date: 20140306
  Transmission Date: 20141002
  Serious: Yes (Other)
  Sender: FDA-Public Use
  Company Number: 163-21880-12120938

PATIENT
  Age: 62 Year
  Sex: Male

DRUGS (1)
  1. REVLIMID [Suspect]
     Indication: PLASMA CELL MYELOMA
     Dosage: 10 MG, 1 IN 1 D, PO
     Route: 048
     Dates: start: 200812

REACTIONS (6)
  - Meningitis [None]
  - Pneumonia [None]
  - Tooth abscess [None]
  - White blood cell count decreased [None]
  - Platelet count decreased [None]
  - Dehydration [None]
